FAERS Safety Report 22642195 (Version 1)
Quarter: 2023Q2

REPORT INFORMATION
  Report Type: Other
  Country: None (occurrence: AU)
  Receive Date: 20230626
  Receipt Date: 20230626
  Transmission Date: 20230721
  Serious: Yes (Life-Threatening, Hospitalization)
  Sender: FDA-Public Use
  Company Number: AU-B.Braun Medical Inc.-2143134

PATIENT
  Age: 19 Month
  Sex: Female

DRUGS (1)
  1. HEPARIN SODIUM IN DEXTROSE [Suspect]
     Active Substance: HEPARIN SODIUM
     Indication: Anticoagulant therapy

REACTIONS (10)
  - Heparin-induced thrombocytopenia [Unknown]
  - Thrombocytopenia [Unknown]
  - Refractoriness to platelet transfusion [Unknown]
  - Haemorrhage [Unknown]
  - Disseminated intravascular coagulation [Unknown]
  - Coagulopathy [Unknown]
  - Blood fibrinogen decreased [Unknown]
  - Antithrombin III decreased [Unknown]
  - Protein C decreased [Unknown]
  - Protein S decreased [Unknown]
